FAERS Safety Report 8777063 (Version 2)
Quarter: 2012Q4

REPORT INFORMATION
  Report Type: 
  Country: IT (occurrence: IT)
  Receive Date: 20120911
  Receipt Date: 20120924
  Transmission Date: 20130627
  Serious: Yes (Other)
  Sender: FDA-Public Use
  Company Number: PHHY2012IT078639

PATIENT
  Age: 78 Year
  Sex: Female

DRUGS (1)
  1. TASIGNA [Suspect]
     Indication: CHRONIC MYELOID LEUKAEMIA
     Dosage: 800 mg, daily
     Route: 048
     Dates: start: 20110430, end: 20120720

REACTIONS (3)
  - Peripheral arterial occlusive disease [Recovering/Resolving]
  - Intermittent claudication [Recovering/Resolving]
  - Femoral artery occlusion [Recovered/Resolved]
